FAERS Safety Report 6743846-7 (Version None)
Quarter: 2010Q2

REPORT INFORMATION
  Report Type: 
  Country: None (occurrence: None)
  Receive Date: 20100527
  Receipt Date: 20100407
  Transmission Date: 20101027
  Serious: No
  Sender: FDA-Public Use
  Company Number: US-KINGPHARMUSA00001-K201000425

PATIENT
  Age: 52 Year
  Sex: Female
  Weight: 92.517 kg

DRUGS (8)
  1. FLECTOR [Suspect]
     Indication: INFLAMMATION
     Dosage: 1 PATCH, Q12 HOUR
     Route: 061
     Dates: start: 20100401, end: 20100401
  2. FLECTOR [Suspect]
     Dosage: 1 PATCH, QD (FOR 12 HOURS)
     Route: 061
     Dates: start: 20100401, end: 20100401
  3. FLECTOR [Suspect]
     Dosage: 1 PATCH, SINGLE (DURATION 5 HOURS)
     Route: 061
     Dates: start: 20100406, end: 20100407
  4. ANTIINFLAMMATORY/ANTIRHEUMATIC PRODUCTS [Concomitant]
     Indication: INFLAMMATION
     Dosage: UNK
     Dates: start: 20100401, end: 20100401
  5. ROXICODONE [Concomitant]
     Indication: RESTLESS LEGS SYNDROME
     Dosage: UNK
  6. VALIUM [Concomitant]
     Indication: RESTLESS LEGS SYNDROME
     Dosage: UNK
  7. ZANAFLEX [Concomitant]
     Indication: NEURALGIA
     Dosage: UNK
  8. KLONOPIN [Concomitant]
     Indication: ANXIETY
     Dosage: UNK

REACTIONS (15)
  - CHEST DISCOMFORT [None]
  - DIARRHOEA [None]
  - DIZZINESS [None]
  - DYSARTHRIA [None]
  - DYSPEPSIA [None]
  - DYSURIA [None]
  - FATIGUE [None]
  - INFLUENZA LIKE ILLNESS [None]
  - LIMB DISCOMFORT [None]
  - MUSCULOSKELETAL PAIN [None]
  - NAUSEA [None]
  - NECK PAIN [None]
  - PAIN [None]
  - URINARY INCONTINENCE [None]
  - VOMITING [None]
